FAERS Safety Report 9981173 (Version 1)
Quarter: 2014Q1

REPORT INFORMATION
  Report Type: Spontaneous
  Country: FR (occurrence: None)
  Receive Date: 20140305
  Receipt Date: 20140305
  Transmission Date: 20141002
  Serious: Yes (Hospitalization)
  Sender: FDA-Public Use
  Company Number: ABR_01514_2014

PATIENT
  Age: 64 Year
  Sex: Male

DRUGS (7)
  1. ERYTHROCINE /00020901/ (ERYTHROCINE) (NOT SPECIFIED) [Suspect]
     Indication: PRODUCT USED FOR UNKNOWN INDICATION
     Dosage: (1 G 1X/3 DAYS INTRAVENOUS (NOT OTHERWISE SPECIFIED))
     Route: 042
     Dates: start: 20130915, end: 20130918
  2. CORDARONE (CORDARONE - AMIODARONE) (NOT SPECIFIED) [Suspect]
     Indication: ATRIAL FIBRILLATION
     Dosage: (DF INTRAVENOUS (NOT OTHERWISE SPECIFIED))
     Route: 042
     Dates: start: 20130916, end: 20130923
  3. CEFOTAXIME SODIUM (CEFOTAXIME SODIUM) [Suspect]
     Indication: SEPTIC SHOCK
     Dosage: (DF INTRAVENOUS (NOT OTHERWISE SPECIFIED))
     Route: 042
     Dates: start: 20130915, end: 20130928
  4. LASILIX /00032601/ (LASILIX - FUROSEMIDE) (NOT SPECIFIED) [Suspect]
     Indication: PRODUCT USED FOR UNKNOWN INDICATION
     Dosage: (DF INTRAVENOUS (NOT OTHERWISE SPECIFIED))
     Route: 042
     Dates: start: 20130917, end: 20130918
  5. TAZOCILLINE (TAZOCILLINE - TAZOBACTAM) (NOT SPECIFIED) [Suspect]
     Indication: PRODUCT USED FOR UNKNOWN INDICATION
     Dosage: (DF)
     Dates: start: 20090919, end: 20130923
  6. CEFOTAXIME [Concomitant]
  7. CEFEPIME [Concomitant]

REACTIONS (2)
  - Acute generalised exanthematous pustulosis [None]
  - Leukocytosis [None]
